FAERS Safety Report 7424446-2 (Version None)
Quarter: 2011Q2

REPORT INFORMATION
  Report Type: 
  Country: None (occurrence: None)
  Receive Date: 20110419
  Receipt Date: 20110411
  Transmission Date: 20111010
  Serious: Yes (Death, Hospitalization)
  Sender: FDA-Public Use
  Company Number: GB-GENZYME-CLOF-1001491

PATIENT
  Sex: Female

DRUGS (9)
  1. NITROGLYCERIN [Concomitant]
     Indication: ANGINA PECTORIS
     Dosage: UNK
     Route: 065
     Dates: start: 20110101, end: 20110101
  2. RISPERIDONE [Concomitant]
     Indication: BIPOLAR DISORDER
     Dosage: 500 MCG, QD
     Route: 065
  3. PROPRANOLOL [Concomitant]
     Indication: BIPOLAR DISORDER
     Dosage: 160 MG, QD
     Route: 065
  4. DIFFLAM [Concomitant]
  5. ALENDRONATE SODIUM [Concomitant]
     Indication: OSTEOPOROSIS
     Dosage: 70 MG, 1X/W
     Route: 065
  6. DIFFLAM [Concomitant]
     Indication: PROPHYLAXIS
     Dosage: 10 ML, QS
     Route: 065
  7. MIRTAZAPINE [Concomitant]
     Indication: BIPOLAR DISORDER
     Dosage: 30 MG, QD
     Route: 065
  8. EVOLTRA [Suspect]
     Indication: ACUTE MYELOID LEUKAEMIA
     Dosage: INCLUSIVE DOSE 34 MG; DOSING SCHEDULE PER PROTOCOL
     Route: 065
     Dates: start: 20110228, end: 20110304
  9. LITHIUM [Concomitant]
     Indication: BIPOLAR DISORDER
     Dosage: 250 MG, QD
     Route: 065

REACTIONS (2)
  - GASTROINTESTINAL HAEMORRHAGE [None]
  - CEREBRAL HAEMORRHAGE [None]
